FAERS Safety Report 9394890 (Version 2)
Quarter: 2013Q3

REPORT INFORMATION
  Report Type: Spontaneous
  Country: TR (occurrence: TR)
  Receive Date: 20130711
  Receipt Date: 20130821
  Transmission Date: 20140515
  Serious: Yes (Other)
  Sender: FDA-Public Use
  Company Number: TR-BAYER-2013-083423

PATIENT
  Age: 52 Year
  Sex: Female
  Weight: 70 kg

DRUGS (1)
  1. ULTRAVIST [Suspect]
     Indication: ARTERIOGRAM CORONARY
     Dosage: 100 ML, ONCE
     Route: 042
     Dates: start: 20130705, end: 20130705

REACTIONS (2)
  - Unevaluable event [Recovered/Resolved]
  - Chills [Recovered/Resolved]
